FAERS Safety Report 10312693 (Version 1)
Quarter: 2014Q3

REPORT INFORMATION
  Report Type: Spontaneous
  Country: FR (occurrence: FR)
  Receive Date: 20140718
  Receipt Date: 20140718
  Transmission Date: 20150326
  Serious: Yes (Other)
  Sender: FDA-Public Use
  Company Number: PHHY2014FR086481

PATIENT
  Age: 46 Year
  Sex: Female

DRUGS (7)
  1. ANGIOTENSIN CONVERTING ENZYME BLOCKERS [Concomitant]
     Active Substance: UNSPECIFIED INGREDIENT
     Indication: CARDIAC DISORDER
  2. AZITHROMYCIN [Concomitant]
     Active Substance: AZITHROMYCIN ANHYDROUS
     Indication: IMMUNOSUPPRESSION
  3. CICLOSPORIN [Suspect]
     Active Substance: CYCLOSPORINE
     Indication: PROPHYLAXIS AGAINST GRAFT VERSUS HOST DISEASE
  4. BETA BLOCKING AGENTS [Concomitant]
     Active Substance: UNSPECIFIED INGREDIENT
     Indication: CARDIAC DISORDER
  5. ATOVAQUONE. [Concomitant]
     Active Substance: ATOVAQUONE
     Indication: OPPORTUNISTIC INFECTION PROPHYLAXIS
  6. MYCOPHENOLATE MOFETIL. [Suspect]
     Active Substance: MYCOPHENOLATE MOFETIL
     Indication: PROPHYLAXIS AGAINST GRAFT VERSUS HOST DISEASE
     Dosage: 2 G, UNK
  7. VALACYCLOVIR [Concomitant]
     Active Substance: VALACYCLOVIR HYDROCHLORIDE
     Indication: OPPORTUNISTIC INFECTION PROPHYLAXIS

REACTIONS (17)
  - Skin lesion [Unknown]
  - Diarrhoea [Unknown]
  - Dysphagia [Unknown]
  - Urticaria [Unknown]
  - Milia [Unknown]
  - Graft versus host disease in gastrointestinal tract [Unknown]
  - Rash erythematous [Unknown]
  - Face oedema [Unknown]
  - Pruritus [Unknown]
  - Oral mucosa erosion [Unknown]
  - Dermatitis bullous [Unknown]
  - Acute graft versus host disease in skin [Unknown]
  - Acquired epidermolysis bullosa [Unknown]
  - Graft versus host disease in lung [Unknown]
  - Blister [Unknown]
  - Rash maculo-papular [Unknown]
  - Weight decreased [Unknown]
